FAERS Safety Report 4533400-X (Version None)
Quarter: 2004Q4

REPORT INFORMATION
  Report Type: 
  Country: None (occurrence: None)
  Receive Date: 20041210
  Receipt Date: 20041012
  Transmission Date: 20050328
  Serious: Yes (Hospitalization)
  Sender: FDA-Public Use
  Company Number: 2004-00625

PATIENT
  Age: 60 Year
  Sex: Male
  Weight: 69.4 kg

DRUGS (4)
  1. VELCADE [Suspect]
     Indication: MULTIPLE MYELOMA
     Dosage: 2.40 MG, INTRAVENOUS
     Route: 042
     Dates: start: 20040816, end: 20040927
  2. ZOMETA [Concomitant]
  3. ARANESP [Concomitant]
  4. DECADRON [Concomitant]

REACTIONS (2)
  - COLONIC OBSTRUCTION [None]
  - LARGE INTESTINE PERFORATION [None]
